FAERS Safety Report 6165632-1 (Version None)
Quarter: 2009Q2

REPORT INFORMATION
  Report Type: 
  Country: None (occurrence: None)
  Receive Date: 20090423
  Receipt Date: 20090408
  Transmission Date: 20091009
  Serious: Yes (Hospitalization, Other)
  Sender: FDA-Public Use
  Company Number: GB-BAUSCH-2009BL001579

PATIENT
  Age: 64 Year
  Sex: Male

DRUGS (13)
  1. PREDNISOLONE [Suspect]
     Indication: DRUG USE FOR UNKNOWN INDICATION
  2. DOCETAXEL [Suspect]
     Indication: PROSTATE CANCER
     Route: 042
     Dates: start: 20080722, end: 20090127
  3. INNOHEP [Suspect]
     Indication: ATRIAL FIBRILLATION
     Route: 058
  4. CP-751871 [Suspect]
     Indication: PROSTATE CANCER
     Route: 042
     Dates: start: 20080923, end: 20090127
  5. ANTAZOLINE [Concomitant]
     Route: 047
  6. DIPROBASE OINTMENT [Concomitant]
  7. NULYTELY [Concomitant]
  8. OXYCONTIN [Concomitant]
  9. ACETAMINOPHEN [Concomitant]
  10. VALSARTAN [Concomitant]
  11. VENLAFAXINE HCL [Concomitant]
  12. VERAPAMIL [Concomitant]
  13. ZOLADEX [Concomitant]
     Dates: start: 20050601

REACTIONS (3)
  - EPISTAXIS [None]
  - OESOPHAGEAL ULCER [None]
  - UPPER GASTROINTESTINAL HAEMORRHAGE [None]
